FAERS Safety Report 18763663 (Version 1)
Quarter: 2021Q1

REPORT INFORMATION
  Report Type: Spontaneous
  Country: US (occurrence: US)
  Receive Date: 20210119
  Receipt Date: 20210119
  Transmission Date: 20210419
  Serious: No
  Sender: FDA-Public Use
  Company Number: None

PATIENT
  Sex: Male
  Weight: 83.5 kg

DRUGS (1)
  1. CISPLATIN (119875) [Suspect]
     Active Substance: CISPLATIN

REACTIONS (5)
  - Lymphocyte count decreased [None]
  - White blood cell count decreased [None]
  - Dysphagia [None]
  - Neutrophil count decreased [None]
  - Oropharyngeal pain [None]

NARRATIVE: CASE EVENT DATE: 20200909
